FAERS Safety Report 14253369 (Version 9)
Quarter: 2018Q3

REPORT INFORMATION
  Report Type: Spontaneous
  Country: US (occurrence: US)
  Receive Date: 20171206
  Receipt Date: 20180831
  Transmission Date: 20181010
  Serious: Yes (Other)
  Sender: FDA-Public Use
  Company Number: PHEH2017US039352

PATIENT
  Age: 36 Year
  Sex: Female
  Weight: 57.6 kg

DRUGS (3)
  1. ZOFRAN [Suspect]
     Active Substance: ONDANSETRON HYDROCHLORIDE
     Indication: PRODUCT USED FOR UNKNOWN INDICATION
     Dosage: 4 MG, UNK
     Route: 048
  2. ZOFRAN [Suspect]
     Active Substance: ONDANSETRON HYDROCHLORIDE
     Indication: VOMITING IN PREGNANCY
     Dosage: 4 MG PER 02 ML, Q6H AS NEEDED PRN
     Route: 042
     Dates: start: 20140222, end: 20141213
  3. ZOFRAN ODT [Suspect]
     Active Substance: ONDANSETRON HYDROCHLORIDE
     Indication: VOMITING IN PREGNANCY
     Dosage: 4 MG, Q6H AS NEEDED PRN
     Route: 048
     Dates: start: 20140222, end: 20141213

REACTIONS (18)
  - Anxiety [Unknown]
  - Product use in unapproved indication [Unknown]
  - Thyroid dysfunction in pregnancy [Unknown]
  - Pain [Unknown]
  - Maternal exposure during pregnancy [Unknown]
  - Injury [Unknown]
  - Anhedonia [Unknown]
  - Hyperparathyroidism [Unknown]
  - Calcium metabolism disorder [Unknown]
  - Renal disorder in pregnancy [Unknown]
  - Premature delivery [Unknown]
  - Cervical dysplasia [Unknown]
  - Hyperkalaemia [Unknown]
  - Emotional distress [Unknown]
  - Essential hypertension [Unknown]
  - Obstetrical pulmonary embolism [Unknown]
  - Anaemia of pregnancy [Unknown]
  - Syncope [Unknown]

NARRATIVE: CASE EVENT DATE: 20141213
